FAERS Safety Report 19859893 (Version 3)
Quarter: 2021Q4

REPORT INFORMATION
  Report Type: Report from Study
  Country: JP (occurrence: JP)
  Receive Date: 20210920
  Receipt Date: 20211118
  Transmission Date: 20220303
  Serious: Yes (Other)
  Sender: FDA-Public Use
  Company Number: JP-TAKEDA-2021TUS057680

PATIENT
  Age: 28 Year
  Sex: Female

DRUGS (14)
  1. GUANFACINE HYDROCHLORIDE [Suspect]
     Active Substance: GUANFACINE HYDROCHLORIDE
     Indication: Attention deficit hyperactivity disorder
     Dosage: 2 MILLIGRAM, QD
     Route: 048
     Dates: start: 20210507, end: 20210513
  2. GUANFACINE HYDROCHLORIDE [Suspect]
     Active Substance: GUANFACINE HYDROCHLORIDE
     Dosage: 3 MILLIGRAM, QD
     Route: 048
     Dates: start: 20210514, end: 20210520
  3. GUANFACINE HYDROCHLORIDE [Suspect]
     Active Substance: GUANFACINE HYDROCHLORIDE
     Dosage: 4 MILLIGRAM, QD
     Route: 048
     Dates: start: 20210521, end: 20210624
  4. GUANFACINE HYDROCHLORIDE [Suspect]
     Active Substance: GUANFACINE HYDROCHLORIDE
     Dosage: 3 MILLIGRAM, QD
     Route: 048
     Dates: start: 20210625, end: 20210708
  5. GUANFACINE HYDROCHLORIDE [Suspect]
     Active Substance: GUANFACINE HYDROCHLORIDE
     Dosage: 2 MILLIGRAM, QD
     Route: 048
     Dates: start: 20210709, end: 20210715
  6. GUANFACINE HYDROCHLORIDE [Suspect]
     Active Substance: GUANFACINE HYDROCHLORIDE
     Dosage: 1 MILLIGRAM, QD
     Route: 048
     Dates: start: 20210716, end: 20210730
  7. LEXAPRO [Suspect]
     Active Substance: ESCITALOPRAM OXALATE
     Indication: Intentional self-injury
     Dosage: UNK
     Route: 065
  8. QUETIAPINE FUMARATE [Suspect]
     Active Substance: QUETIAPINE FUMARATE
     Indication: Intentional self-injury
     Dosage: UNK
     Route: 065
  9. STRATTERA [Concomitant]
     Active Substance: ATOMOXETINE HYDROCHLORIDE
     Indication: Attention deficit hyperactivity disorder
     Dosage: UNK
     Route: 065
     Dates: end: 20210528
  10. CONCERTA [Concomitant]
     Active Substance: METHYLPHENIDATE HYDROCHLORIDE
     Indication: Attention deficit hyperactivity disorder
     Dosage: UNK
     Route: 065
  11. TANDOSPIRONE CITRATE [Concomitant]
     Active Substance: TANDOSPIRONE CITRATE
     Indication: Product used for unknown indication
     Dosage: UNK
     Route: 065
  12. DAYVIGO [Concomitant]
     Active Substance: LEMBOREXANT
     Indication: Product used for unknown indication
     Dosage: UNK
     Route: 065
  13. REBAMIPIDE [Concomitant]
     Active Substance: REBAMIPIDE
     Indication: Product used for unknown indication
     Dosage: UNK
     Route: 065
     Dates: end: 20210730
  14. ESTAZOLAM [Concomitant]
     Active Substance: ESTAZOLAM
     Dosage: UNK
     Route: 065

REACTIONS (5)
  - Intentional self-injury [Not Recovered/Not Resolved]
  - Somnolence [Recovered/Resolved]
  - Blood pressure decreased [Recovered/Resolved]
  - Malaise [Recovering/Resolving]
  - Amylase increased [Recovered/Resolved]

NARRATIVE: CASE EVENT DATE: 20210609
